FAERS Safety Report 6846701-7 (Version None)
Quarter: 2010Q3

REPORT INFORMATION
  Report Type: 
  Country: None (occurrence: None)
  Receive Date: 20100713
  Receipt Date: 20100629
  Transmission Date: 20110219
  Serious: Yes (Hospitalization)
  Sender: FDA-Public Use
  Company Number: 2010US002580

PATIENT
  Age: 58 Year
  Sex: Male

DRUGS (3)
  1. AMBISOME [Suspect]
     Indication: MENINGITIS CRYPTOCOCCAL
     Dosage: 4 MG/KG, UID/QD, IV NOS
     Route: 042
  2. ANCOTIL (FLUCYTOSINE) [Concomitant]
  3. VFEND [Concomitant]

REACTIONS (2)
  - BLOOD CREATININE INCREASED [None]
  - PYREXIA [None]
